FAERS Safety Report 7898901-5 (Version None)
Quarter: 2011Q4

REPORT INFORMATION
  Report Type: 
  Country: None (occurrence: None)
  Receive Date: 20111107
  Receipt Date: 20111026
  Transmission Date: 20120403
  Serious: Yes (Life-Threatening)
  Sender: FDA-Public Use
  Company Number: FR-ASTRAZENECA-2011SE66362

PATIENT
  Age: 8954 Day
  Sex: Female

DRUGS (8)
  1. IMURAN [Concomitant]
     Indication: CROHN'S DISEASE
  2. TIENAM [Suspect]
     Indication: PYREXIA
     Route: 042
     Dates: start: 20110909, end: 20110918
  3. VANCOMYCIN HCL [Suspect]
     Indication: PYREXIA
     Route: 042
     Dates: start: 20110909, end: 20110913
  4. AMIKACIN [Suspect]
     Indication: PYREXIA
     Dates: start: 20110825, end: 20110828
  5. FOSCAVIR [Suspect]
     Indication: CYTOMEGALOVIRUS INFECTION
     Route: 042
     Dates: start: 20110903, end: 20110909
  6. PIPERACILLIN AND TAZOBACTAM [Suspect]
     Indication: PYREXIA
     Route: 042
     Dates: start: 20110825, end: 20110909
  7. CANCIDAS [Concomitant]
     Indication: CANDIDIASIS
     Route: 042
  8. GANCICLOVIR SODIUM [Suspect]
     Indication: CYTOMEGALOVIRUS INFECTION
     Route: 042
     Dates: start: 20110830, end: 20110916

REACTIONS (1)
  - PANCYTOPENIA [None]
